FAERS Safety Report 5609209-2 (Version None)
Quarter: 2008Q1

REPORT INFORMATION
  Report Type: 
  Country: None (occurrence: None)
  Receive Date: 20080131
  Receipt Date: 20080128
  Transmission Date: 20080703
  Serious: Yes (Hospitalization)
  Sender: FDA-Public Use
  Company Number: FR-WYE-G00957908

PATIENT
  Sex: Female

DRUGS (12)
  1. NOVATREX [Suspect]
     Indication: RHEUMATOID ARTHRITIS
     Route: 048
     Dates: start: 20010101, end: 20071124
  2. CARTREX [Suspect]
     Route: 048
     Dates: end: 20071123
  3. INIPOMP [Suspect]
     Route: 048
     Dates: end: 20071123
  4. SKENAN [Concomitant]
     Route: 048
  5. VOGALENE [Concomitant]
     Route: 048
  6. GLUCOR [Concomitant]
     Indication: TYPE 2 DIABETES MELLITUS
     Route: 048
  7. AMARYL [Suspect]
     Indication: TYPE 2 DIABETES MELLITUS
     Route: 048
     Dates: end: 20071126
  8. AMARYL [Suspect]
     Route: 048
     Dates: start: 20071127
  9. MODUCREN [Concomitant]
     Indication: HYPERTENSION
     Route: 048
  10. IRBESARTAN [Concomitant]
     Route: 048
  11. FUCIDINE CAP [Suspect]
     Indication: DIABETIC FOOT
     Route: 048
     Dates: start: 20070101, end: 20071123
  12. STAGID [Concomitant]
     Indication: TYPE 2 DIABETES MELLITUS
     Route: 048

REACTIONS (8)
  - DIABETIC FOOT [None]
  - ECCHYMOSIS [None]
  - FALL [None]
  - HAEMATOMA [None]
  - HAEMODILUTION [None]
  - HYPOGLYCAEMIA [None]
  - OEDEMA PERIPHERAL [None]
  - PANCYTOPENIA [None]
